FAERS Safety Report 15767800 (Version 2)
Quarter: 2019Q1

REPORT INFORMATION
  Report Type: Spontaneous
  Country: GB (occurrence: GB)
  Receive Date: 20181227
  Receipt Date: 20190108
  Transmission Date: 20190417
  Serious: No
  Sender: FDA-Public Use
  Company Number: GB-PROMETHEUS LABORATORIES-2018PL000034

PATIENT
  Age: 61 Year
  Sex: Male

DRUGS (1)
  1. PROLEUKIN [Suspect]
     Active Substance: ALDESLEUKIN
     Indication: PRODUCT USED FOR UNKNOWN INDICATION
     Dosage: UNK UNKNOWN
     Route: 065
     Dates: start: 20180301, end: 20180606

REACTIONS (1)
  - Disease progression [Unknown]
